FAERS Safety Report 6331781-8 (Version None)
Quarter: 2009Q3

REPORT INFORMATION
  Report Type: 
  Country: None (occurrence: None)
  Receive Date: 20090826
  Receipt Date: 20090811
  Transmission Date: 20100115
  Serious: Yes (Hospitalization)
  Sender: FDA-Public Use
  Company Number: 238945K09USA

PATIENT
  Age: 63 Year
  Sex: Female
  Weight: 77 kg

DRUGS (9)
  1. REBIF [Suspect]
     Indication: MULTIPLE SCLEROSIS
     Dosage: 44 MCG, 3 IN 1 WEEKS, SUBCUTANEOUS
     Route: 058
     Dates: start: 20090206
  2. NAPROSYN [Concomitant]
  3. DARVOCET [Concomitant]
  4. ALBUTEROL (SALBUTAMOL /00139501/) [Concomitant]
  5. ATENOLOL [Concomitant]
  6. LASIX (FUROSEMIDE /00032601/) [Concomitant]
  7. PEPSID (FAMOTIDINE) [Concomitant]
  8. TRAMADOL HCL [Concomitant]
  9. CLONAZEPAM [Concomitant]

REACTIONS (3)
  - CYSTITIS ESCHERICHIA [None]
  - DYSSTASIA [None]
  - MOBILITY DECREASED [None]
